FAERS Safety Report 6043932-3 (Version None)
Quarter: 2009Q1

REPORT INFORMATION
  Report Type: 
  Country: None (occurrence: None)
  Receive Date: 20090120
  Receipt Date: 20090108
  Transmission Date: 20090719
  Serious: Yes (Other)
  Sender: FDA-Public Use
  Company Number: HU-AVENTIS-200910234GDDC

PATIENT
  Age: 43 Year
  Sex: Female
  Weight: 70 kg

DRUGS (8)
  1. LANTUS [Suspect]
     Indication: DIABETES MELLITUS
     Route: 058
     Dates: start: 20081201, end: 20081225
  2. APIDRA [Concomitant]
     Indication: DIABETES MELLITUS
     Dosage: DOSE: UNK
     Route: 058
     Dates: start: 20081201, end: 20081201
  3. CIFRAN                             /00697201/ [Concomitant]
     Indication: INFECTION
     Dosage: DOSE: 2X1
     Route: 048
  4. TALLITON-CARVEDILOL [Concomitant]
     Indication: HYPERTENSION
     Dosage: DOSE: 12.5,2X1
     Route: 048
  5. ASPIRIN [Concomitant]
     Indication: PROPHYLAXIS
     Dosage: DOSE: 1X1
     Route: 048
  6. UNKNOWN DRUG [Concomitant]
     Dosage: DOSE: 30MG,  1X1
     Route: 048
  7. FRONTIN [Concomitant]
     Indication: ANXIETY
     Dosage: DOSE: 1-1-2
     Route: 048
  8. ENOXAPARIN SODIUM [Concomitant]
     Dosage: DOSE: 1X0.8
     Route: 058

REACTIONS (3)
  - COMA [None]
  - DIABETIC KETOACIDOSIS [None]
  - DRUG INEFFECTIVE [None]
